FAERS Safety Report 15170895 (Version 1)
Quarter: 2018Q3

REPORT INFORMATION
  Report Type: Report from Study
  Country: US (occurrence: US)
  Receive Date: 20180720
  Receipt Date: 20180720
  Transmission Date: 20181010
  Serious: Yes (Other)
  Sender: FDA-Public Use
  Company Number: US-JNJFOC-20180721782

PATIENT
  Age: 60 Year

DRUGS (1)
  1. INVOKANA [Suspect]
     Active Substance: CANAGLIFLOZIN
     Indication: PRODUCT USED FOR UNKNOWN INDICATION
     Route: 065

REACTIONS (5)
  - Cardiac ventricular disorder [Unknown]
  - Pollakiuria [Unknown]
  - Pulmonary hypertension [Unknown]
  - Protein urine present [Not Recovered/Not Resolved]
  - Eye disorder [Unknown]
